FAERS Safety Report 7518201-2 (Version None)
Quarter: 2011Q2

REPORT INFORMATION
  Report Type: 
  Country: None (occurrence: None)
  Receive Date: 20110602
  Receipt Date: 20110525
  Transmission Date: 20111010
  Serious: Yes (Hospitalization)
  Sender: FDA-Public Use
  Company Number: US-US-EMD SERONO, INC.-7062179

PATIENT
  Sex: Female
  Weight: 36 kg

DRUGS (2)
  1. REBIF [Suspect]
     Indication: PRODUCT USED FOR UNKNOWN INDICATION
     Route: 058
     Dates: start: 20081012
  2. NEURONTIN [Concomitant]
     Indication: CONVULSION
     Dates: start: 20080101

REACTIONS (12)
  - COMA [None]
  - POOR PERIPHERAL CIRCULATION [None]
  - DRUG HYPERSENSITIVITY [None]
  - BLISTER [None]
  - EATING DISORDER [None]
  - INJECTION SITE ULCER [None]
  - CONVULSION [None]
  - MALNUTRITION [None]
  - HALLUCINATION [None]
  - INJECTION SITE RASH [None]
  - MALAISE [None]
  - STRESS [None]
